FAERS Safety Report 24391953 (Version 3)
Quarter: 2024Q4

REPORT INFORMATION
  Report Type: Spontaneous
  Country: US (occurrence: US)
  Receive Date: 20241003
  Receipt Date: 20241220
  Transmission Date: 20250115
  Serious: No
  Sender: PFIZER
  Company Number: US-PFIZER INC-PV202300048721

PATIENT
  Age: 66 Year
  Sex: Female
  Weight: 68.04 kg

DRUGS (3)
  1. IBRANCE [Suspect]
     Active Substance: PALBOCICLIB
     Dosage: 125 MG, CYCLIC (DAILY ON DAYS 1-25 OF 28 DAY CYCLE)
     Route: 048
  2. IBRANCE [Suspect]
     Active Substance: PALBOCICLIB
     Dosage: 125 MG, CYCLIC (DAILY ON DAYS 1 THROUGH 21 OF A 28-DAY TREATMENT CYCLE)
     Route: 048
  3. LYRICA [Concomitant]
     Active Substance: PREGABALIN
     Dosage: 100 MG, 2X/DAY (BID)
     Route: 048

REACTIONS (2)
  - Tooth infection [Unknown]
  - Off label use [Unknown]

NARRATIVE: CASE EVENT DATE: 20240901
